FAERS Safety Report 13584797 (Version 1)
Quarter: 2017Q2

REPORT INFORMATION
  Report Type: Spontaneous
  Country: JP (occurrence: JP)
  Receive Date: 20170526
  Receipt Date: 20170526
  Transmission Date: 20170830
  Serious: Yes (Other)
  Sender: FDA-Public Use
  Company Number: JP-CORDEN PHARMA LATINA S.P.A.-JP-2017COR000126

PATIENT
  Age: 74 Year
  Sex: Male

DRUGS (2)
  1. CISPLATIN. [Suspect]
     Active Substance: CISPLATIN
     Indication: MIXED ADENONEUROENDOCRINE CARCINOMA
     Dosage: UNK, 4 CYCLES NEOADJUVANT
  2. ETOPOSIDE. [Suspect]
     Active Substance: ETOPOSIDE
     Indication: MIXED ADENONEUROENDOCRINE CARCINOMA
     Dosage: UNK

REACTIONS (2)
  - Disseminated intravascular coagulation [Unknown]
  - Febrile neutropenia [Unknown]
